FAERS Safety Report 5478200-1 (Version None)
Quarter: 2007Q4

REPORT INFORMATION
  Report Type: 
  Country: None (occurrence: None)
  Receive Date: 20071005
  Receipt Date: 20070418
  Transmission Date: 20080405
  Serious: No
  Sender: FDA-Public Use
  Company Number: US-BRISTOL-MYERS SQUIBB COMPANY-13752027

PATIENT
  Age: 66 Year
  Sex: Female
  Weight: 116 kg

DRUGS (3)
  1. AVALIDE [Suspect]
     Dates: start: 20050104, end: 20070225
  2. AVAPRO [Suspect]
     Dates: start: 20070303
  3. TENORMIN [Concomitant]

REACTIONS (6)
  - HEADACHE [None]
  - NAUSEA [None]
  - POLLAKIURIA [None]
  - PRURITUS [None]
  - RASH [None]
  - VERTIGO [None]
